FAERS Safety Report 10930558 (Version 1)
Quarter: 2015Q1

REPORT INFORMATION
  Report Type: Spontaneous
  Country: AT (occurrence: AT)
  Receive Date: 20150319
  Receipt Date: 20150319
  Transmission Date: 20150721
  Serious: Yes (Death)
  Sender: FDA-Public Use
  Company Number: AT-CELGENE-AUT-2015032538

PATIENT
  Sex: Male

DRUGS (1)
  1. AZACITIDINE (NOVAPLUS) [Suspect]
     Active Substance: AZACITIDINE
     Indication: ACUTE MYELOID LEUKAEMIA
     Route: 065
     Dates: start: 201406

REACTIONS (1)
  - Acute myeloid leukaemia [Fatal]
